FAERS Safety Report 10583931 (Version 1)
Quarter: 2014Q4

REPORT INFORMATION
  Report Type: Spontaneous
  Country: SA (occurrence: None)
  Receive Date: 20141112
  Receipt Date: 20141112
  Transmission Date: 20150529
  Serious: Yes (Other)
  Sender: FDA-Public Use
  Company Number: IMP_08083_2014

PATIENT
  Sex: Female

DRUGS (1)
  1. SOTALOL HCL (SOTALOL HCL) (NOT SPECIFIED) [Suspect]
     Active Substance: SOTALOL
     Indication: TACHYCARDIA FOETAL
     Route: 048

REACTIONS (7)
  - Dizziness [None]
  - Fatigue [None]
  - Caesarean section [None]
  - Exposure during pregnancy [None]
  - Supraventricular tachycardia [None]
  - Postpartum disorder [None]
  - Tachyarrhythmia [None]
